FAERS Safety Report 9742517 (Version 1)
Quarter: 2013Q4

REPORT INFORMATION
  Report Type: Not Available
  Country: DK (occurrence: DK)
  Receive Date: 20131210
  Receipt Date: 20131210
  Transmission Date: 20140711
  Serious: Yes (Life-Threatening)
  Sender: FDA-Public Use
  Company Number: DK-IAC JAPAN XML-GBR-2013-0016478

PATIENT
  Age: 58 Year
  Sex: Female

DRUGS (2)
  1. NORSPAN [Suspect]
     Indication: PAIN
     Dosage: 5 MCG, Q1H
     Route: 062
     Dates: start: 20131104
  2. GABAPENTIN [Concomitant]
     Indication: PAIN

REACTIONS (1)
  - Angioedema [Recovered/Resolved]
